FAERS Safety Report 17852855 (Version 2)
Quarter: 2020Q3

REPORT INFORMATION
  Report Type: Report from Study
  Country: MX (occurrence: MX)
  Receive Date: 20200603
  Receipt Date: 20200918
  Transmission Date: 20201103
  Serious: Yes (Other)
  Sender: FDA-Public Use
  Company Number: MX-ADVANZ PHARMA-202005005836

PATIENT

DRUGS (1)
  1. HYDROXYCHLOROQUINE SULFATE (AUTHORIZED GENERIC),PLAQUENIL [Suspect]
     Active Substance: HYDROXYCHLOROQUINE SULFATE
     Indication: COVID-19 PROPHYLAXIS
     Dosage: 1 DOSAGE FORM, QD (HYDROXYCHLOROQUINE SULFATE VS PLACEBO (CODE NOT BROKEN))
     Route: 048
     Dates: start: 20200424, end: 20200518

REACTIONS (6)
  - COVID-19 [Recovered/Resolved]
  - Arthralgia [Recovered/Resolved]
  - Off label use [Unknown]
  - Myalgia [Recovered/Resolved]
  - Asthenia [Recovered/Resolved]
  - Rhinorrhoea [Recovered/Resolved]

NARRATIVE: CASE EVENT DATE: 20200424
